FAERS Safety Report 11816878 (Version 4)
Quarter: 2018Q1

REPORT INFORMATION
  Report Type: Spontaneous
  Country: US (occurrence: US)
  Receive Date: 20151210
  Receipt Date: 20180118
  Transmission Date: 20180508
  Serious: No
  Sender: FDA-Public Use
  Company Number: US-JNJFOC-20151115023

PATIENT
  Age: 39 Year
  Sex: Male

DRUGS (39)
  1. INVEGA SUSTENNA [Suspect]
     Active Substance: PALIPERIDONE PALMITATE
     Indication: SUSPICIOUSNESS
     Route: 030
     Dates: start: 20130207, end: 20140911
  2. INVEGA [Suspect]
     Active Substance: PALIPERIDONE
     Indication: SCHIZOPHRENIA
     Route: 048
     Dates: start: 2004, end: 2009
  3. RISPERDAL [Suspect]
     Active Substance: RISPERIDONE
     Indication: BIPOLAR DISORDER
     Dosage: VARYING DOSES OF 2 MG, 3 MG AND 4.5 MG.
     Route: 048
     Dates: start: 20100914, end: 20150519
  4. RISPERDAL [Suspect]
     Active Substance: RISPERIDONE
     Indication: SCHIZOPHRENIA
     Route: 048
  5. INVEGA [Suspect]
     Active Substance: PALIPERIDONE
     Indication: PARANOIA
     Route: 048
     Dates: start: 20150415, end: 20150812
  6. RISPERDAL [Suspect]
     Active Substance: RISPERIDONE
     Indication: BIPOLAR DISORDER
     Dosage: 1 MG AND 3 MG
     Route: 048
     Dates: start: 20100621, end: 20100826
  7. RISPERDAL [Suspect]
     Active Substance: RISPERIDONE
     Indication: SCHIZOPHRENIA
     Dosage: VARYING DOSES OF 2 MG, 3 MG AND 4.5 MG.
     Route: 048
     Dates: start: 20100914, end: 20150519
  8. RISPERDAL [Suspect]
     Active Substance: RISPERIDONE
     Indication: SCHIZOPHRENIA
     Dosage: VARYING DOSES OF 0.5 MG, 3 MG AND 4 MG.
     Route: 048
     Dates: start: 20110119, end: 20140911
  9. INVEGA SUSTENNA [Suspect]
     Active Substance: PALIPERIDONE PALMITATE
     Indication: SCHIZOPHRENIA
     Route: 030
     Dates: end: 20171009
  10. RISPERIDONE. [Suspect]
     Active Substance: RISPERIDONE
     Indication: PRODUCT USED FOR UNKNOWN INDICATION
     Route: 048
  11. INVEGA [Suspect]
     Active Substance: PALIPERIDONE
     Indication: PARANOIA
     Route: 048
     Dates: start: 2004, end: 2009
  12. RISPERDAL CONSTA [Suspect]
     Active Substance: RISPERIDONE
     Indication: SCHIZOPHRENIA
     Route: 030
     Dates: start: 20110119, end: 20140911
  13. INVEGA SUSTENNA [Suspect]
     Active Substance: PALIPERIDONE PALMITATE
     Indication: SUSPICIOUSNESS
     Route: 030
     Dates: start: 20150415, end: 20150812
  14. INVEGA [Suspect]
     Active Substance: PALIPERIDONE
     Indication: SUSPICIOUSNESS
     Route: 048
     Dates: start: 20150415, end: 20150812
  15. INVEGA SUSTENNA [Suspect]
     Active Substance: PALIPERIDONE PALMITATE
     Indication: PARANOIA
     Route: 030
     Dates: end: 20171009
  16. INVEGA SUSTENNA [Suspect]
     Active Substance: PALIPERIDONE PALMITATE
     Indication: PARANOIA
     Route: 030
     Dates: start: 20141008, end: 20141105
  17. RISPERDAL [Suspect]
     Active Substance: RISPERIDONE
     Indication: BIPOLAR DISORDER
     Route: 048
  18. RISPERDAL [Suspect]
     Active Substance: RISPERIDONE
     Indication: BIPOLAR DISORDER
     Dosage: VARYING DOSES OF 0.5 MG, 3 MG AND 4 MG.
     Route: 048
     Dates: start: 20110119, end: 20140911
  19. RISPERDAL [Suspect]
     Active Substance: RISPERIDONE
     Indication: SCHIZOPHRENIA
     Dosage: VARYING DOSES OF 0.5 MG, 2 MG AND 3 MG.
     Route: 048
     Dates: start: 20141008, end: 20141105
  20. RISPERDAL CONSTA [Suspect]
     Active Substance: RISPERIDONE
     Indication: BIPOLAR DISORDER
     Route: 030
     Dates: start: 20110119, end: 20140911
  21. INVEGA SUSTENNA [Suspect]
     Active Substance: PALIPERIDONE PALMITATE
     Indication: SUSPICIOUSNESS
     Route: 030
     Dates: start: 20141008, end: 20141105
  22. INVEGA SUSTENNA [Suspect]
     Active Substance: PALIPERIDONE PALMITATE
     Indication: SCHIZOPHRENIA
     Route: 030
     Dates: start: 20130207, end: 20140911
  23. INVEGA [Suspect]
     Active Substance: PALIPERIDONE
     Indication: SUSPICIOUSNESS
     Route: 048
  24. INVEGA [Suspect]
     Active Substance: PALIPERIDONE
     Indication: SCHIZOPHRENIA
     Route: 048
     Dates: start: 20150415, end: 20150812
  25. SEROQUEL [Suspect]
     Active Substance: QUETIAPINE FUMARATE
     Indication: PRODUCT USED FOR UNKNOWN INDICATION
     Route: 065
  26. RISPERDAL [Suspect]
     Active Substance: RISPERIDONE
     Indication: BIPOLAR DISORDER
     Route: 048
     Dates: start: 2004, end: 2009
  27. RISPERDAL [Suspect]
     Active Substance: RISPERIDONE
     Indication: SCHIZOPHRENIA
     Route: 048
     Dates: start: 2004, end: 2009
  28. INVEGA SUSTENNA [Suspect]
     Active Substance: PALIPERIDONE PALMITATE
     Indication: SUSPICIOUSNESS
     Route: 030
     Dates: end: 20171009
  29. INVEGA SUSTENNA [Suspect]
     Active Substance: PALIPERIDONE PALMITATE
     Indication: PARANOIA
     Route: 030
     Dates: start: 20130207, end: 20140911
  30. INVEGA [Suspect]
     Active Substance: PALIPERIDONE
     Indication: SCHIZOPHRENIA
     Route: 048
  31. RISPERDAL [Suspect]
     Active Substance: RISPERIDONE
     Indication: BIPOLAR DISORDER
     Dosage: VARYING DOSES OF 0.5 MG, 2 MG AND 3 MG.
     Route: 048
     Dates: start: 20141008, end: 20141105
  32. RISPERDAL [Suspect]
     Active Substance: RISPERIDONE
     Indication: BIPOLAR DISORDER
     Route: 048
     Dates: start: 20100101, end: 20171009
  33. RISPERDAL [Suspect]
     Active Substance: RISPERIDONE
     Indication: SCHIZOPHRENIA
     Dosage: 1 MG AND 3 MG
     Route: 048
     Dates: start: 20100621, end: 20100826
  34. RISPERDAL [Suspect]
     Active Substance: RISPERIDONE
     Indication: SCHIZOPHRENIA
     Route: 048
     Dates: start: 20100101, end: 20171009
  35. INVEGA SUSTENNA [Suspect]
     Active Substance: PALIPERIDONE PALMITATE
     Indication: PARANOIA
     Route: 030
     Dates: start: 20150415, end: 20150812
  36. INVEGA SUSTENNA [Suspect]
     Active Substance: PALIPERIDONE PALMITATE
     Indication: SCHIZOPHRENIA
     Route: 030
     Dates: start: 20150415, end: 20150812
  37. INVEGA SUSTENNA [Suspect]
     Active Substance: PALIPERIDONE PALMITATE
     Indication: SCHIZOPHRENIA
     Route: 030
     Dates: start: 20141008, end: 20141105
  38. INVEGA [Suspect]
     Active Substance: PALIPERIDONE
     Indication: SUSPICIOUSNESS
     Route: 048
     Dates: start: 2004, end: 2009
  39. INVEGA [Suspect]
     Active Substance: PALIPERIDONE
     Indication: PARANOIA
     Route: 048

REACTIONS (6)
  - Lip disorder [Not Recovered/Not Resolved]
  - Abnormal weight gain [Unknown]
  - Treatment noncompliance [Unknown]
  - Gynaecomastia [Unknown]
  - Muscle rigidity [Recovering/Resolving]
  - Akathisia [Not Recovered/Not Resolved]

NARRATIVE: CASE EVENT DATE: 2004
